FAERS Safety Report 7909329-3 (Version None)
Quarter: 2011Q4

REPORT INFORMATION
  Report Type: 
  Country: None (occurrence: None)
  Receive Date: 20111111
  Receipt Date: 20111107
  Transmission Date: 20120403
  Serious: Yes (Hospitalization)
  Sender: FDA-Public Use
  Company Number: US-B.I. PHARMACEUTICALS,INC./RIDGEFIELD-2011-BP-18502BP

PATIENT
  Age: 79 Year
  Sex: Female

DRUGS (8)
  1. AMARYL [Concomitant]
  2. SPIRONOLACTONE [Concomitant]
  3. PRADAXA [Suspect]
     Dosage: 150 MG
     Route: 048
     Dates: end: 20110717
  4. DIGOXIN [Concomitant]
  5. PRADAXA [Suspect]
     Indication: ATRIAL FIBRILLATION
     Dosage: 300 MG
     Route: 048
     Dates: start: 20101222
  6. SIMVASTATIN [Concomitant]
  7. LASIX [Concomitant]
  8. SYNTHROID [Concomitant]

REACTIONS (4)
  - ANAEMIA [None]
  - HAEMORRHAGE [None]
  - LOWER GASTROINTESTINAL HAEMORRHAGE [None]
  - MYALGIA [None]
